FAERS Safety Report 21571598 (Version 1)
Quarter: 2022Q4

REPORT INFORMATION
  Report Type: Spontaneous
  Country: US (occurrence: US)
  Receive Date: 20221109
  Receipt Date: 20221109
  Transmission Date: 20230113
  Serious: Yes (Other)
  Sender: FDA-Public Use
  Company Number: US-GSKCCFUS-Case-01547277_AE-87570

PATIENT

DRUGS (2)
  1. TRELEGY ELLIPTA [Interacting]
     Active Substance: FLUTICASONE FUROATE\UMECLIDINIUM BROMIDE\VILANTEROL TRIFENATATE
     Indication: Product used for unknown indication
     Dosage: UNK, 200
  2. OXYBUTYNIN [Interacting]
     Active Substance: OXYBUTYNIN
     Indication: Hypertonic bladder
     Dosage: UNK

REACTIONS (4)
  - Urinary retention [Not Recovered/Not Resolved]
  - Hypertonic bladder [Unknown]
  - Drug interaction [Unknown]
  - Labelled drug-drug interaction issue [Unknown]
